FAERS Safety Report 7253645-8 (Version None)
Quarter: 2011Q1

REPORT INFORMATION
  Report Type: 
  Country: None (occurrence: None)
  Receive Date: 20110129
  Receipt Date: 20100319
  Transmission Date: 20110831
  Serious: No
  Sender: FDA-Public Use
  Company Number: US-ABBOTT-10P-163-0633443-00

PATIENT
  Sex: Male
  Weight: 104.42 kg

DRUGS (2)
  1. HUMIRA [Suspect]
     Indication: RHEUMATOID ARTHRITIS
     Dates: start: 20100315
  2. BYETTA [Concomitant]
     Indication: DIABETES MELLITUS
     Dates: start: 20100317

REACTIONS (5)
  - FEELING HOT [None]
  - SKIN BURNING SENSATION [None]
  - RASH [None]
  - URTICARIA [None]
  - RASH VESICULAR [None]
